FAERS Safety Report 8000916-3 (Version None)
Quarter: 2011Q4

REPORT INFORMATION
  Report Type: 
  Country: None (occurrence: None)
  Receive Date: 20111123
  Receipt Date: 20110826
  Transmission Date: 20120403
  Serious: No
  Sender: FDA-Public Use
  Company Number: 336629

PATIENT
  Age: 64 Year
  Sex: Female

DRUGS (1)
  1. VICTOZA [Suspect]
     Indication: PRODUCT USED FOR UNKNOWN INDICATION
     Dosage: 0.6 MG, 1.2 MG, QD, SUBCUTANEOUS
     Dates: start: 20110101

REACTIONS (2)
  - ABDOMINAL DISTENSION [None]
  - FLATULENCE [None]
